FAERS Safety Report 16312858 (Version 2)
Quarter: 2019Q2

REPORT INFORMATION
  Report Type: Report from Study
  Country: HN (occurrence: HN)
  Receive Date: 20190515
  Receipt Date: 20190529
  Transmission Date: 20190711
  Serious: Yes (Other)
  Sender: FDA-Public Use
  Company Number: PHHY2019HN108419

PATIENT
  Sex: Female
  Weight: 81 kg

DRUGS (1)
  1. CO-DIOVAN [Suspect]
     Active Substance: HYDROCHLOROTHIAZIDE\VALSARTAN
     Indication: HYPERTENSION
     Dosage: UNK UNK, QD
     Route: 065

REACTIONS (7)
  - Bone pain [Unknown]
  - Ill-defined disorder [Unknown]
  - Blood pressure fluctuation [Unknown]
  - Anxiety [Unknown]
  - Arthralgia [Unknown]
  - Hypertension [Unknown]
  - Feeling of despair [Unknown]
